FAERS Safety Report 13681399 (Version 1)
Quarter: 2017Q2

REPORT INFORMATION
  Report Type: Spontaneous
  Country: US (occurrence: US)
  Receive Date: 20170622
  Receipt Date: 20170622
  Transmission Date: 20170830
  Serious: Yes (Hospitalization, Disabling)
  Sender: FDA-Public Use
  Company Number: None

PATIENT
  Age: 57 Year
  Sex: Female
  Weight: 58.5 kg

DRUGS (4)
  1. ALLEGRA [Concomitant]
     Active Substance: FEXOFENADINE HYDROCHLORIDE
  2. PREDISONE 10MG [Suspect]
     Active Substance: PREDNISONE
     Indication: INFECTION
     Dosage: ?          QUANTITY:6 TABLET(S);?
     Route: 048
     Dates: start: 20160913, end: 20160922
  3. PREDISONE 10MG [Suspect]
     Active Substance: PREDNISONE
     Indication: INFLAMMATION
     Dosage: ?          QUANTITY:6 TABLET(S);?
     Route: 048
     Dates: start: 20160913, end: 20160922
  4. PREDISONE 10MG [Suspect]
     Active Substance: PREDNISONE
     Indication: SINUS DISORDER
     Dosage: ?          QUANTITY:6 TABLET(S);?
     Route: 048
     Dates: start: 20160913, end: 20160922

REACTIONS (4)
  - Mania [None]
  - Psychotic disorder [None]
  - Hunger [None]
  - Hyperhidrosis [None]

NARRATIVE: CASE EVENT DATE: 20160929
